FAERS Safety Report 6804264-6 (Version None)
Quarter: 2010Q2

REPORT INFORMATION
  Report Type: 
  Country: None (occurrence: None)
  Receive Date: 20100628
  Receipt Date: 20070305
  Transmission Date: 20101027
  Serious: No
  Sender: FDA-Public Use
  Company Number: US-PFIZER INC-2007018523

PATIENT
  Sex: Female
  Weight: 56.7 kg

DRUGS (7)
  1. CADUET [Suspect]
     Indication: BLOOD CHOLESTEROL INCREASED
     Dosage: 2.5MG/20MG
     Dates: start: 20051021
  2. CADUET [Suspect]
     Indication: HYPERTENSION
  3. PROPAFENONE HCL [Concomitant]
  4. ACETYLSALICYLIC ACID [Concomitant]
  5. LUNESTA [Concomitant]
  6. FISH OIL [Concomitant]
  7. MULTI-VITAMINS [Concomitant]

REACTIONS (1)
  - NERVE COMPRESSION [None]
